FAERS Safety Report 8128566-9 (Version None)
Quarter: 2012Q1

REPORT INFORMATION
  Report Type: 
  Country: None (occurrence: None)
  Receive Date: 20120210
  Receipt Date: 20111206
  Transmission Date: 20120608
  Serious: No
  Sender: FDA-Public Use
  Company Number: PR-BRISTOL-MYERS SQUIBB COMPANY-16273591

PATIENT
  Age: 4 Decade
  Sex: Female

DRUGS (1)
  1. ORENCIA [Suspect]
     Dosage: 1DF : 1 DROP FELL INTO EYE
     Dates: start: 20111206, end: 20111206

REACTIONS (1)
  - ACCIDENTAL EXPOSURE [None]
